FAERS Safety Report 5804257-1 (Version None)
Quarter: 2008Q3

REPORT INFORMATION
  Report Type: 
  Country: None (occurrence: None)
  Receive Date: 20080707
  Receipt Date: 20080626
  Transmission Date: 20090109
  Serious: Yes (Hospitalization, Other)
  Sender: FDA-Public Use
  Company Number: 2008SP010994

PATIENT
  Age: 68 Year
  Sex: Male

DRUGS (4)
  1. TEMODAL [Suspect]
     Indication: METASTATIC MALIGNANT MELANOMA
     Dosage: 300 MG, PO
     Route: 048
     Dates: start: 20080507, end: 20080527
  2. BEVACIZUMAB (BEVACIZUMAB) [Suspect]
     Indication: METASTATIC MALIGNANT MELANOMA
     Dosage: 750 MG, IV
     Route: 042
     Dates: start: 20080507, end: 20080521
  3. FORTECORTIN [Concomitant]
  4. BELOC ZOK [Concomitant]

REACTIONS (2)
  - PULMONARY EMBOLISM [None]
  - PULMONARY HAEMORRHAGE [None]
